FAERS Safety Report 8854908 (Version 2)
Quarter: 2012Q4

REPORT INFORMATION
  Report Type: 
  Country: JP (occurrence: JP)
  Receive Date: 20121023
  Receipt Date: 20121102
  Transmission Date: 20130627
  Serious: No
  Sender: FDA-Public Use
  Company Number: JP-ELI_LILLY_AND_COMPANY-JP201210004042

PATIENT
  Age: 15 Year
  Sex: Female

DRUGS (1)
  1. ZYPREXA [Suspect]
     Dosage: 2.5 mg, qd
     Route: 048
     Dates: start: 20121010

REACTIONS (1)
  - Dysmenorrhoea [Recovering/Resolving]
